FAERS Safety Report 18728903 (Version 1)
Quarter: 2021Q1

REPORT INFORMATION
  Report Type: Spontaneous
  Country: US (occurrence: US)
  Receive Date: 20210112
  Receipt Date: 20210112
  Transmission Date: 20210419
  Serious: Yes (Hospitalization, Other)
  Sender: FDA-Public Use
  Company Number: US-EMCURE PHARMACEUTICALS LTD-2021-EPL-000043

PATIENT
  Age: 32 Year
  Sex: Male

DRUGS (1)
  1. ACETAMINOPHEN. [Suspect]
     Active Substance: ACETAMINOPHEN
     Indication: PRODUCT USED FOR UNKNOWN INDICATION
     Dosage: 1.5 GRAM, QD

REACTIONS (6)
  - Hyperbilirubinaemia [Recovering/Resolving]
  - Toxicity to various agents [Unknown]
  - Nephropathy [Unknown]
  - Hepatic failure [Unknown]
  - Acute kidney injury [Recovering/Resolving]
  - Fanconi syndrome acquired [Unknown]
